FAERS Safety Report 22047548 (Version 7)
Quarter: 2023Q2

REPORT INFORMATION
  Report Type: Report from Study
  Country: SG (occurrence: None)
  Receive Date: 20230301
  Receipt Date: 20230417
  Transmission Date: 20230721
  Serious: Yes (Life-Threatening, Hospitalization)
  Sender: FDA-Public Use
  Company Number: SG-ROCHE-3294718

PATIENT
  Age: 55 Year
  Sex: Male
  Weight: 50.6 kg

DRUGS (38)
  1. RITUXIMAB [Suspect]
     Active Substance: RITUXIMAB
     Indication: Diffuse large B-cell lymphoma
     Dosage: PRIOR TO THE EVENT ONSET, THE PATIENT RECEIVED CYCLE 1 DAY 15 OF RITUXIMAB WITH THE LATEST DOSE ADMI
     Route: 042
     Dates: start: 20230119, end: 20230209
  2. GEMCITABINE [Suspect]
     Active Substance: GEMCITABINE
     Indication: Diffuse large B-cell lymphoma
     Dosage: PRIOR TO THE EVENT ONSET, THE PATIENT RECEIVED CYCLE 1 DAY 16 OF GEMCITABINE ON 10/FEB/2023.
     Route: 042
     Dates: start: 20230120, end: 20230210
  3. OXALIPLATIN [Suspect]
     Active Substance: OXALIPLATIN
     Indication: Diffuse large B-cell lymphoma
     Dosage: PRIOR TO THE EVENT ONSET, THE PATIENT RECEIVED CYCLE 1 DAY 16 OF OXALIPLATIN ON 10/FEB/2023.
     Route: 042
     Dates: start: 20230120, end: 20230210
  4. COTRIMOXAZOLE [Concomitant]
     Active Substance: SULFAMETHOXAZOLE\TRIMETHOPRIM
     Dates: start: 20230109, end: 20230213
  5. VITAMIN D3 [Concomitant]
     Active Substance: CHOLECALCIFEROL
     Dates: start: 20230202, end: 20230203
  6. VITAMIN D3 [Concomitant]
     Active Substance: CHOLECALCIFEROL
     Dates: start: 20230201, end: 20230201
  7. PROLIA [Concomitant]
     Active Substance: DENOSUMAB
     Dates: start: 20230131, end: 20230131
  8. DEXAMETHASONE PHOSPHATE [Concomitant]
     Active Substance: DEXAMETHASONE PHOSPHATE
     Route: 042
     Dates: start: 20230210, end: 20230210
  9. DEXTROMETHORPHAN HYDROBROMIDE [Concomitant]
     Active Substance: DEXTROMETHORPHAN HYDROBROMIDE
     Dates: start: 20230113, end: 20230201
  10. DIPHENHYDRAMINE HYDROCHLORIDE [Concomitant]
     Active Substance: DIPHENHYDRAMINE HYDROCHLORIDE
     Route: 042
     Dates: start: 20230209, end: 20230209
  11. FUROSEMIDE [Concomitant]
     Active Substance: FUROSEMIDE
     Dates: start: 20230212, end: 20230212
  12. FUROSEMIDE [Concomitant]
     Active Substance: FUROSEMIDE
     Dates: start: 20230121, end: 20230211
  13. HEPARINOID [Concomitant]
     Dates: start: 20230125, end: 20230203
  14. HYDROCORTISONE [Concomitant]
     Active Substance: HYDROCORTISONE
     Route: 042
     Dates: start: 20230209, end: 20230209
  15. MAGNESIUM ELEMENTAL [Concomitant]
     Dates: start: 20230131, end: 20230202
  16. MAGNESIUM SULFATE [Concomitant]
     Active Substance: MAGNESIUM SULFATE
     Dates: start: 20230201, end: 20230213
  17. ONDANSETRON [Concomitant]
     Active Substance: ONDANSETRON
     Route: 042
     Dates: start: 20230210, end: 20230210
  18. ORALSEVEN MOISTURISING MOUTHWASH [Concomitant]
     Dates: start: 20230109, end: 20230214
  19. ACETAMINOPHEN [Concomitant]
     Active Substance: ACETAMINOPHEN
     Dates: start: 20230107, end: 20230213
  20. PEGFILGRASTIM [Concomitant]
     Active Substance: PEGFILGRASTIM
     Dates: start: 20230211, end: 20230211
  21. PENTAMIDINE ISETHIONATE [Concomitant]
     Active Substance: PENTAMIDINE ISETHIONATE
     Dates: start: 20230213, end: 20230213
  22. PLASMALYTE A [Concomitant]
     Dates: start: 20230130, end: 20230202
  23. POTASSIUM CHLORIDE [Concomitant]
     Active Substance: POTASSIUM CHLORIDE
     Dates: start: 20230116, end: 20230214
  24. POTASSIUM PHOSPHATE, MONOBASIC [Concomitant]
     Active Substance: POTASSIUM PHOSPHATE, MONOBASIC
     Dates: start: 20230131, end: 20230214
  25. SENNOSIDES [Concomitant]
     Active Substance: SENNOSIDES
     Dates: start: 20230123, end: 20230203
  26. SODIUM CHLORIDE [Concomitant]
     Active Substance: SODIUM CHLORIDE
     Dates: start: 20230130, end: 20230209
  27. TRAMADOL HCL [Concomitant]
     Active Substance: TRAMADOL HYDROCHLORIDE
     Dates: start: 20230109, end: 20230201
  28. ZOMETA [Concomitant]
     Active Substance: ZOLEDRONIC ACID
     Dates: start: 20230126, end: 20230126
  29. ACETYLCYSTEINE [Concomitant]
     Active Substance: ACETYLCYSTEINE
     Dates: start: 20230105, end: 20230214
  30. ACYCLOVIR [Concomitant]
     Active Substance: ACYCLOVIR
     Dates: start: 20230109, end: 20230214
  31. AMIKACIN [Concomitant]
     Active Substance: AMIKACIN
     Dates: start: 20230212, end: 20230212
  32. CALCITONIN [Concomitant]
     Active Substance: CALCITONIN
     Dates: start: 20230130, end: 20230201
  33. CEFEPIME [Concomitant]
     Active Substance: CEFEPIME HYDROCHLORIDE
     Dates: start: 20230212, end: 20230212
  34. LACTULOSE [Concomitant]
     Active Substance: LACTULOSE
     Dates: start: 20230123, end: 20230214
  35. CODEINE PHOSPHATE\PROMETHAZINE HYDROCHLORIDE [Concomitant]
     Active Substance: CODEINE PHOSPHATE\PROMETHAZINE HYDROCHLORIDE
     Dates: start: 20230210, end: 20230213
  36. OMEPRAZOLE [Concomitant]
     Active Substance: OMEPRAZOLE
     Dates: start: 20230209, end: 20230209
  37. CHOLECALCIFEROL [Concomitant]
     Active Substance: CHOLECALCIFEROL
     Dates: start: 20230209, end: 20230214
  38. DEXTROSE [Concomitant]
     Active Substance: DEXTROSE\DEXTROSE MONOHYDRATE
     Dosage: INFUSION, 5 PERCENT;
     Dates: start: 20230125, end: 20230125

REACTIONS (1)
  - Acute respiratory failure [Recovered/Resolved]

NARRATIVE: CASE EVENT DATE: 20230222
